FAERS Safety Report 25963046 (Version 1)
Quarter: 2025Q4

REPORT INFORMATION
  Report Type: Spontaneous
  Country: CA (occurrence: CA)
  Receive Date: 20251027
  Receipt Date: 20251027
  Transmission Date: 20260117
  Serious: Yes (Other)
  Sender: NOVO NORDISK
  Company Number: None

PATIENT
  Age: 3 Year
  Sex: Male

DRUGS (1)
  1. NORDITROPIN [Suspect]
     Active Substance: SOMATROPIN
     Indication: Prader-Willi syndrome
     Dosage: 400 MICROGRAMS  + 200 MICROGRAMS (90 : THERAPY DURATION) 1 EVERY 1 WEEKS
     Route: 058

REACTIONS (3)
  - Conjunctivitis [Unknown]
  - Cryptorchism [Unknown]
  - Strabismus [Unknown]
